FAERS Safety Report 7957586-X (Version None)
Quarter: 2011Q4

REPORT INFORMATION
  Report Type: 
  Country: None (occurrence: None)
  Receive Date: 20111205
  Receipt Date: 20111128
  Transmission Date: 20120403
  Serious: Yes (Hospitalization)
  Sender: FDA-Public Use
  Company Number: GB-GLAXOSMITHKLINE-B0766986A

PATIENT
  Age: 19 Month
  Sex: Male

DRUGS (2)
  1. BECLOMETHASONE DIPROPIONATE [Suspect]
     Indication: ASTHMA
     Route: 055
     Dates: start: 20111123
  2. VENTOLIN [Concomitant]

REACTIONS (4)
  - RASH ERYTHEMATOUS [None]
  - URTICARIA [None]
  - LIP SWELLING [None]
  - OEDEMA MOUTH [None]
